FAERS Safety Report 9454563 (Version 1)
Quarter: 2013Q3

REPORT INFORMATION
  Report Type: Spontaneous
  Country: JP (occurrence: JP)
  Receive Date: 20130812
  Receipt Date: 20130812
  Transmission Date: 20140515
  Serious: Yes (Other)
  Sender: FDA-Public Use
  Company Number: JP-UCBSA-094961

PATIENT
  Age: 74 Year
  Sex: Female

DRUGS (1)
  1. XYZAL [Suspect]
     Indication: URTICARIA
     Route: 048
     Dates: start: 20130727

REACTIONS (2)
  - Convulsion [Unknown]
  - Dyskinesia [Unknown]
